FAERS Safety Report 17850791 (Version 1)
Quarter: 2020Q2

REPORT INFORMATION
  Report Type: Spontaneous
  Country: DE (occurrence: DE)
  Receive Date: 20200602
  Receipt Date: 20200602
  Transmission Date: 20200714
  Serious: Yes (Death, Hospitalization)
  Sender: FDA-Public Use
  Company Number: NVSC2020DE151837

PATIENT
  Age: 69 Year
  Sex: Male
  Weight: 85 kg

DRUGS (1)
  1. PEGFILGRASTIM [Suspect]
     Active Substance: PEGFILGRASTIM
     Indication: PRODUCT USED FOR UNKNOWN INDICATION
     Dosage: 6 MG, QD (STRENGTH-6 MG,1ST CYCLE)
     Route: 058
     Dates: start: 20191023

REACTIONS (2)
  - Death [Fatal]
  - Discomfort [Unknown]

NARRATIVE: CASE EVENT DATE: 20191029
